FAERS Safety Report 20973299 (Version 1)
Quarter: 2022Q2

REPORT INFORMATION
  Report Type: Spontaneous
  Country: CA (occurrence: CA)
  Receive Date: 20220617
  Receipt Date: 20220617
  Transmission Date: 20220720
  Serious: Yes (Other)
  Sender: FDA-Public Use
  Company Number: CA-CELLTRION INC.-2022CA009416

PATIENT

DRUGS (2)
  1. INFLECTRA [Suspect]
     Active Substance: INFLIXIMAB-DYYB
     Indication: Colitis ulcerative
     Dosage: 900 MG,Q 0, 2, 6 WEEKS THEN EVERY 8 WEEKS, FIRST DOSE RECEIVED IN HOSPITAL
     Route: 042
     Dates: start: 20220304
  2. INFLECTRA [Suspect]
     Active Substance: INFLIXIMAB-DYYB
     Dosage: 900 MG,Q 0, 2, 6 WEEKS THEN EVERY 8 WEEKS, FIRST DOSE RECEIVED IN HOSPITAL
     Route: 042
     Dates: start: 20220607

REACTIONS (1)
  - Limb injury [Recovering/Resolving]

NARRATIVE: CASE EVENT DATE: 20220605
